FAERS Safety Report 18665852 (Version 1)
Quarter: 2020Q4

REPORT INFORMATION
  Report Type: Spontaneous
  Country: GB (occurrence: GB)
  Receive Date: 20201226
  Receipt Date: 20201226
  Transmission Date: 20210114
  Serious: Yes (Hospitalization, Disabling)
  Sender: FDA-Public Use
  Company Number: GB-TEVA-2020-GB-1861468

PATIENT
  Age: 77 Year
  Sex: Female
  Weight: 86 kg

DRUGS (9)
  1. HUMULIN L [Concomitant]
     Active Substance: INSULIN HUMAN
  2. ZOLEDRONIC ACID [Suspect]
     Active Substance: ZOLEDRONIC ACID
     Indication: BREAST CANCER METASTATIC
     Dosage: 3 MG
     Route: 042
     Dates: start: 20201124, end: 20201124
  3. FULVESTRANT. [Concomitant]
     Active Substance: FULVESTRANT
  4. AMITRIPTYLINE HYDROCHLORIDE. [Concomitant]
     Active Substance: AMITRIPTYLINE HYDROCHLORIDE
  5. OXYNORM [Concomitant]
     Active Substance: OXYCODONE HYDROCHLORIDE
  6. PALBOCICLIB [Concomitant]
     Active Substance: PALBOCICLIB
  7. GENERICS UK RAMIPRIL [Concomitant]
  8. METFORMIN HYDROCHLORIDE. [Concomitant]
     Active Substance: METFORMIN HYDROCHLORIDE
  9. FENTANYL. [Concomitant]
     Active Substance: FENTANYL

REACTIONS (1)
  - Acute kidney injury [Not Recovered/Not Resolved]

NARRATIVE: CASE EVENT DATE: 20201203
